FAERS Safety Report 10746975 (Version 13)
Quarter: 2015Q4

REPORT INFORMATION
  Report Type: Report from Study
  Country: FI (occurrence: FI)
  Receive Date: 20150129
  Receipt Date: 20151208
  Transmission Date: 20160304
  Serious: Yes (Hospitalization, Other)
  Sender: FDA-Public Use
  Company Number: FI-ROCHE-1525472

PATIENT
  Age: 66 Year
  Sex: Male
  Weight: 100 kg

DRUGS (62)
  1. OBINUTUZUMAB [Suspect]
     Active Substance: OBINUTUZUMAB
     Dosage: C1D8?DELAYED DUE TO FEBRILE NEUTROPENIA
     Route: 041
     Dates: start: 20150128, end: 20150128
  2. FLUDARABINE [Suspect]
     Active Substance: FLUDARABINE PHOSPHATE
     Dosage: C1D3?LAST DOSE PRIOR TO EVENTS
     Route: 048
     Dates: start: 20150116, end: 20150116
  3. FLUDARABINE [Suspect]
     Active Substance: FLUDARABINE PHOSPHATE
     Dosage: C2D3?LAST DOSE PRIOR TO NEUTROPENIA 3RD EPISODE.
     Route: 048
     Dates: start: 20150226, end: 20150226
  4. HISTEC [Concomitant]
     Route: 048
     Dates: start: 20150224, end: 20150224
  5. HISTEC [Concomitant]
     Route: 048
     Dates: start: 20150526, end: 20150526
  6. ONDANSETRON [Concomitant]
     Active Substance: ONDANSETRON
     Route: 048
     Dates: start: 20150114, end: 20150331
  7. PETIDIN [Concomitant]
     Dosage: FOR TREATMENT OF AE 2.
     Route: 042
     Dates: start: 20150114, end: 20150114
  8. VALTREX [Concomitant]
     Active Substance: VALACYCLOVIR HYDROCHLORIDE
     Indication: PROPHYLAXIS
     Route: 048
     Dates: start: 20150109
  9. SOLU-MEDROL [Concomitant]
     Active Substance: METHYLPREDNISOLONE SODIUM SUCCINATE
     Route: 042
     Dates: start: 20150224, end: 20150224
  10. PARATABS [Concomitant]
     Route: 048
     Dates: start: 20150224, end: 20150224
  11. PARATABS [Concomitant]
     Route: 048
     Dates: start: 20150128, end: 20150128
  12. PARATABS [Concomitant]
     Route: 048
     Dates: start: 20150526, end: 20150526
  13. HISTEC [Concomitant]
     Indication: PROPHYLAXIS
     Route: 048
     Dates: start: 20150114, end: 20150114
  14. HISTEC [Concomitant]
     Route: 048
     Dates: start: 20150204, end: 20150204
  15. HISTEC [Concomitant]
     Route: 048
     Dates: start: 20150331, end: 20150331
  16. CYCLOPHOSPHAMIDE. [Suspect]
     Active Substance: CYCLOPHOSPHAMIDE
     Dosage: C1D3?LAST DOSE PRIOR TO EVENTS
     Route: 048
     Dates: start: 20150116, end: 20150116
  17. SOMAC [Concomitant]
     Active Substance: PANTOPRAZOLE SODIUM
     Indication: GASTROOESOPHAGEAL REFLUX DISEASE
     Route: 048
     Dates: start: 20110819
  18. HISTEC [Concomitant]
     Route: 048
     Dates: start: 20150115, end: 20150115
  19. HISTEC [Concomitant]
     Route: 048
     Dates: start: 20150128, end: 20150128
  20. HISTEC [Concomitant]
     Route: 048
     Dates: start: 20150428, end: 20150428
  21. COTRIM D.S. [Concomitant]
     Active Substance: SULFAMETHOXAZOLE\TRIMETHOPRIM
     Indication: PROPHYLAXIS
     Dosage: STRENGTH: 100/80MG
     Route: 048
     Dates: start: 20150114
  22. CYCLOPHOSPHAMIDE. [Suspect]
     Active Substance: CYCLOPHOSPHAMIDE
     Indication: CHRONIC LYMPHOCYTIC LEUKAEMIA
     Dosage: C1D1
     Route: 048
     Dates: start: 20150114, end: 20150114
  23. CYCLOPHOSPHAMIDE. [Suspect]
     Active Substance: CYCLOPHOSPHAMIDE
     Dosage: C2D1
     Route: 048
     Dates: start: 20150224, end: 20150224
  24. FLUDARABINE [Suspect]
     Active Substance: FLUDARABINE PHOSPHATE
     Dosage: C2D1
     Route: 048
     Dates: start: 20150224, end: 20150224
  25. THYROXIN [Concomitant]
     Active Substance: LEVOTHYROXINE
     Indication: HYPOTHYROIDISM
     Dosage: 2 TBL TWICE A WEEK, 1 TBL 5 DAYS IN WEEK
     Route: 048
     Dates: start: 20130902
  26. SOLU-MEDROL [Concomitant]
     Active Substance: METHYLPREDNISOLONE SODIUM SUCCINATE
     Route: 042
     Dates: start: 20150115, end: 20150115
  27. SOLU-MEDROL [Concomitant]
     Active Substance: METHYLPREDNISOLONE SODIUM SUCCINATE
     Route: 042
     Dates: start: 20150128, end: 20150128
  28. SOLU-MEDROL [Concomitant]
     Active Substance: METHYLPREDNISOLONE SODIUM SUCCINATE
     Route: 042
     Dates: start: 20150623, end: 20150623
  29. PARATABS [Concomitant]
     Route: 048
     Dates: start: 20150204, end: 20150204
  30. PARATABS [Concomitant]
     Route: 048
     Dates: start: 20150331, end: 20150331
  31. PARATABS [Concomitant]
     Route: 048
     Dates: start: 20150428, end: 20150428
  32. HISTEC [Concomitant]
     Route: 048
     Dates: start: 20150623, end: 20150623
  33. ZOFRAN [Concomitant]
     Active Substance: ONDANSETRON HYDROCHLORIDE
     Indication: PROPHYLAXIS
     Route: 048
     Dates: start: 20150114, end: 20150114
  34. CYCLOPHOSPHAMIDE. [Suspect]
     Active Substance: CYCLOPHOSPHAMIDE
     Dosage: C1D2
     Route: 048
     Dates: start: 20150115, end: 20150115
  35. CYCLOPHOSPHAMIDE. [Suspect]
     Active Substance: CYCLOPHOSPHAMIDE
     Dosage: C2D3?LAST DOSE PRIOR TO NEUTROPENIA THIRD EPISODE.
     Route: 048
     Dates: start: 20150226, end: 20150226
  36. SOLU-MEDROL [Concomitant]
     Active Substance: METHYLPREDNISOLONE SODIUM SUCCINATE
     Dosage: TREATMENT FOR ADVERSE EVENT 1.
     Route: 042
     Dates: start: 20150114, end: 20150114
  37. ONDANSETRON [Concomitant]
     Active Substance: ONDANSETRON
     Indication: PROPHYLAXIS
     Dosage: FOR TREATMENT OF AE 1.
     Route: 042
     Dates: start: 20150114, end: 20150114
  38. PERFALGAN [Concomitant]
     Active Substance: ACETAMINOPHEN
     Dosage: FOR TREATMENT OF AE 2.
     Route: 042
     Dates: start: 20150114, end: 20150114
  39. VALTREX [Concomitant]
     Active Substance: VALACYCLOVIR HYDROCHLORIDE
     Route: 065
     Dates: start: 20140901
  40. APURIN [Concomitant]
     Active Substance: ALLOPURINOL
     Indication: PROPHYLAXIS
     Route: 048
     Dates: start: 20141213
  41. CYCLOPHOSPHAMIDE. [Suspect]
     Active Substance: CYCLOPHOSPHAMIDE
     Dosage: C2D2
     Route: 048
     Dates: start: 20150225, end: 20150225
  42. FLUDARABINE [Suspect]
     Active Substance: FLUDARABINE PHOSPHATE
     Indication: CHRONIC LYMPHOCYTIC LEUKAEMIA
     Dosage: C1D1
     Route: 048
     Dates: start: 20150114, end: 20150114
  43. SOLU-MEDROL [Concomitant]
     Active Substance: METHYLPREDNISOLONE SODIUM SUCCINATE
     Route: 042
     Dates: start: 20150428, end: 20150428
  44. TAVEGYL [Concomitant]
     Active Substance: CLEMASTINE FUMARATE
     Dosage: FOR TREATMENT OF AE 1.
     Route: 042
     Dates: start: 20150114, end: 20150114
  45. COTRIM D.S. [Concomitant]
     Active Substance: SULFAMETHOXAZOLE\TRIMETHOPRIM
     Dosage: 160/800MG
     Route: 065
     Dates: start: 20140901
  46. BURANA [Concomitant]
     Active Substance: IBUPROFEN
     Indication: PROPHYLAXIS
     Route: 048
     Dates: start: 20150107
  47. ZOFRAN [Concomitant]
     Active Substance: ONDANSETRON HYDROCHLORIDE
     Route: 048
     Dates: start: 20150224, end: 20150224
  48. OBINUTUZUMAB [Suspect]
     Active Substance: OBINUTUZUMAB
     Indication: CHRONIC LYMPHOCYTIC LEUKAEMIA
     Dosage: C1D1?REDUCED INFUSION RATE FOR INFUSION RELATED REACTION.?FREQUENCY: ON DAY 1,2,8 AND 15 OF CYCLE 1
     Route: 041
     Dates: start: 20150114, end: 20150114
  49. OBINUTUZUMAB [Suspect]
     Active Substance: OBINUTUZUMAB
     Dosage: C1D15
     Route: 041
     Dates: start: 20150204, end: 20150204
  50. FLUDARABINE [Suspect]
     Active Substance: FLUDARABINE PHOSPHATE
     Dosage: C2D2
     Route: 048
     Dates: start: 20150225, end: 20150225
  51. SOLU-MEDROL [Concomitant]
     Active Substance: METHYLPREDNISOLONE SODIUM SUCCINATE
     Indication: PROPHYLAXIS
     Route: 042
     Dates: start: 20150114, end: 20150114
  52. SOLU-MEDROL [Concomitant]
     Active Substance: METHYLPREDNISOLONE SODIUM SUCCINATE
     Route: 042
     Dates: start: 20150331, end: 20150331
  53. SOLU-MEDROL [Concomitant]
     Active Substance: METHYLPREDNISOLONE SODIUM SUCCINATE
     Route: 042
     Dates: start: 20150526, end: 20150526
  54. PARATABS [Concomitant]
     Route: 048
     Dates: start: 20150623, end: 20150623
  55. APURIN [Concomitant]
     Active Substance: ALLOPURINOL
     Route: 048
     Dates: start: 20150113
  56. OBINUTUZUMAB [Suspect]
     Active Substance: OBINUTUZUMAB
     Dosage: C1D2?LAST DOSE PRIOR TO SAE
     Route: 041
     Dates: start: 20150115, end: 20150115
  57. OBINUTUZUMAB [Suspect]
     Active Substance: OBINUTUZUMAB
     Dosage: C2D1?LAST DOSE PRIOR TO NEUTROPENIA THIRD EPISODE.
     Route: 041
     Dates: start: 20150224, end: 20150224
  58. FLUDARABINE [Suspect]
     Active Substance: FLUDARABINE PHOSPHATE
     Dosage: C1D2
     Route: 048
     Dates: start: 20150115, end: 20150115
  59. THYROXIN [Concomitant]
     Active Substance: LEVOTHYROXINE
     Route: 065
     Dates: start: 20130711
  60. SOLU-MEDROL [Concomitant]
     Active Substance: METHYLPREDNISOLONE SODIUM SUCCINATE
     Route: 042
     Dates: start: 20150204, end: 20150204
  61. PARATABS [Concomitant]
     Indication: PROPHYLAXIS
     Route: 048
     Dates: start: 20150114, end: 20150114
  62. PANADOL (FINLAND) [Concomitant]
     Indication: PROPHYLAXIS
     Route: 048
     Dates: start: 20150115, end: 20150115

REACTIONS (2)
  - Neutropenia [Recovered/Resolved]
  - Febrile neutropenia [Recovered/Resolved]

NARRATIVE: CASE EVENT DATE: 20150120
